FAERS Safety Report 7286102-3 (Version None)
Quarter: 2011Q1

REPORT INFORMATION
  Report Type: 
  Country: None (occurrence: None)
  Receive Date: 20110210
  Receipt Date: 20091004
  Transmission Date: 20110831
  Serious: Yes (Other)
  Sender: FDA-Public Use
  Company Number: US-BAYER-2011-008281

PATIENT
  Sex: Male

DRUGS (1)
  1. TRASYLOL [Suspect]
     Indication: CARDIAC OPERATION
     Dosage: UNK
     Route: 042
     Dates: start: 20050419

REACTIONS (4)
  - RENAL FAILURE ACUTE [None]
  - PAIN [None]
  - INJURY [None]
  - RENAL FAILURE [None]
